FAERS Safety Report 6872854-0 (Version None)
Quarter: 2010Q3

REPORT INFORMATION
  Report Type: 
  Country: None (occurrence: None)
  Receive Date: 20100723
  Receipt Date: 20081104
  Transmission Date: 20110219
  Serious: No
  Sender: FDA-Public Use
  Company Number: US-PFIZER INC-2008093098

PATIENT
  Sex: Female

DRUGS (9)
  1. CHANTIX [Suspect]
     Dates: start: 20081031
  2. BENICAR [Concomitant]
  3. TRAZODONE [Concomitant]
  4. LEXAPRO [Concomitant]
  5. LIPITOR [Concomitant]
  6. PRILOSEC [Concomitant]
  7. PROVIGIL [Concomitant]
  8. METHADONE HCL [Concomitant]
  9. LYRICA [Concomitant]

REACTIONS (2)
  - NAUSEA [None]
  - VOMITING [None]
